FAERS Safety Report 14546848 (Version 2)
Quarter: 2019Q2

REPORT INFORMATION
  Report Type: Spontaneous
  Country: US (occurrence: US)
  Receive Date: 20180219
  Receipt Date: 20190510
  Transmission Date: 20190711
  Serious: No
  Sender: FDA-Public Use
  Company Number: US-PFIZER INC-2018067164

PATIENT
  Age: 68 Year
  Sex: Male
  Weight: 87.9 kg

DRUGS (20)
  1. BUPRENORPHINE. [Concomitant]
     Active Substance: BUPRENORPHINE
     Dosage: UNK (PLACE 1 PATCH ON THE SKIN EVERY SEVEN (7) DAYS)
     Route: 062
  2. LASIX [Concomitant]
     Active Substance: FUROSEMIDE
     Dosage: 20 MG, 2X/DAY (TAKE 20 MG BY MOUTH TWO (2) TIMES A DAY.)
     Route: 048
  3. MIRALAX [Concomitant]
     Active Substance: POLYETHYLENE GLYCOL 3350
     Dosage: 17 G, 1X/DAY (TAKE 17 G BY MOUTH EVERY MORNING)
     Route: 048
  4. ECOTRIN [Concomitant]
     Active Substance: ASPIRIN
     Dosage: 81 MG, DAILY (TAKE 1 TABLET (81 MG TOTAL) BY MOUTH DAILY)
     Route: 048
  5. MAG OXIDE [Concomitant]
     Active Substance: MAGNESIUM OXIDE
     Dosage: 400 MG, DAILY (TAKE 1 TABLET (400 MG TOTAL) BY MOUTH DAILY.)
     Route: 048
  6. ZAMICET [Concomitant]
     Active Substance: ACETAMINOPHEN\HYDROCODONE BITARTRATE
     Indication: PAIN
     Dosage: UNK, AS NEEDED (TAKE BY MOUTH EVERY SIX (6) HOURS AS NEEDED FOR PAIN)
     Route: 048
  7. NPH INSULIN [Concomitant]
     Active Substance: INSULIN BEEF
     Dosage: UNK (INJECT UNDER THE SKIN. AS DIR)
  8. OSCAL [Concomitant]
     Active Substance: CALCIUM CARBONATE
     Dosage: 600 MG, DAILY
     Route: 048
  9. PLAVIX [Concomitant]
     Active Substance: CLOPIDOGREL BISULFATE
     Dosage: 75 MG, 1X/DAY (TAKE 75 MG BY MOUTH EVERY EVENING.)
     Route: 048
  10. LYRICA [Suspect]
     Active Substance: PREGABALIN
     Indication: PAIN
     Dosage: 50 MG, TWICE A DAY
     Route: 048
     Dates: start: 20180131, end: 20180211
  11. NITROSTAT [Concomitant]
     Active Substance: NITROGLYCERIN
     Indication: CHEST PAIN
     Dosage: 0.4 MG, AS NEEDED [EVERY FIVE (5) MINUTES AS NEEDED]
     Route: 060
  12. POTASSIUM [Concomitant]
     Active Substance: POTASSIUM
     Dosage: 99 MG, 1X/DAY (TAKE 99 MG BY MOUTH  EVERY EVENING)
     Route: 048
  13. RANEXA [Concomitant]
     Active Substance: RANOLAZINE
     Dosage: 1000 MG, 2X/DAY (TAKE 1 TABLE T (1,000 MG TOTAL) BY MOUTH TWO (2) TIMES A DAY)
     Route: 048
  14. VITAMIN D3 [Concomitant]
     Active Substance: CHOLECALCIFEROL
     Dosage: 2000 IU, 1X/DAY (TAKE 2,000 UNITS BY MOUTH EVERY MORNING)
     Route: 048
  15. PRINIVIL [Concomitant]
     Active Substance: LISINOPRIL
     Dosage: 5 MG, AS NEEDED (TAKE 5 MG BY MOUTH DAILY AS NEEDED)
     Route: 048
  16. ZESTRIL [Concomitant]
     Active Substance: LISINOPRIL
     Dosage: 5 MG, AS NEEDED (TAKE 5 MG BY MOUTH DAILY AS NEEDED)
     Route: 048
  17. NOVOLIN R [Concomitant]
     Active Substance: INSULIN HUMAN
     Dosage: UNK
  18. ZOFRAN [Concomitant]
     Active Substance: ONDANSETRON HYDROCHLORIDE
     Indication: NAUSEA
     Dosage: 16 MG, AS NEEDED (TAKE 4 MG BY MOUTH EVERY EIGHT (8) HOURS AS NEEDED FOR NAUSEA)
     Route: 048
  19. PROTONIX [Concomitant]
     Active Substance: PANTOPRAZOLE SODIUM
     Dosage: 40 MG, 1X/DAY (TAKE 40 MG BY MOUTH EVERY MORNING. TAKE MORNING OF SURGERY WITH SIP OF WATER)
     Route: 048
  20. BETAPACE [Concomitant]
     Active Substance: SOTALOL HYDROCHLORIDE
     Dosage: 120 MG, 2X/DAY (TAKE 120 MG BY MOUTH TWO (2) TIMES A DAY)
     Route: 048

REACTIONS (6)
  - Gait inability [Unknown]
  - Feeling jittery [Not Recovered/Not Resolved]
  - Drug hypersensitivity [Unknown]
  - Nervousness [Not Recovered/Not Resolved]
  - Body height decreased [Unknown]
  - Dysstasia [Unknown]

NARRATIVE: CASE EVENT DATE: 201802
